FAERS Safety Report 17777589 (Version 2)
Quarter: 2021Q4

REPORT INFORMATION
  Report Type: Report from Study
  Country: US (occurrence: US)
  Receive Date: 20200513
  Receipt Date: 20211014
  Transmission Date: 20220303
  Serious: No
  Sender: FDA-Public Use
  Company Number: US-ACADIA PHARMACEUTICALS INC.-ACA-2019-014896

PATIENT
  Age: 77 Year
  Sex: Female

DRUGS (19)
  1. NUPLAZID [Suspect]
     Active Substance: PIMAVANSERIN TARTRATE
     Indication: Parkinson^s disease psychosis
     Dosage: 34 MG, QD
     Route: 048
     Dates: start: 20191105
  2. NUPLAZID [Suspect]
     Active Substance: PIMAVANSERIN TARTRATE
     Indication: Hallucination
  3. NUPLAZID [Suspect]
     Active Substance: PIMAVANSERIN TARTRATE
     Indication: Delusion
  4. ALBUTEROL [Concomitant]
     Active Substance: ALBUTEROL
  5. ASMANEX [Concomitant]
     Active Substance: MOMETASONE FUROATE
  6. CALCIUM PLUS [CALCIUM] [Concomitant]
  7. CENTRUM MINIS WOMEN 50+ [Concomitant]
  8. CITALOPRAM [Concomitant]
     Active Substance: CITALOPRAM HYDROBROMIDE
  9. CLONAZEPAM [Concomitant]
     Active Substance: CLONAZEPAM
  10. NEUPRO [Concomitant]
     Active Substance: ROTIGOTINE
  11. OMEPRAZOLE [Concomitant]
     Active Substance: OMEPRAZOLE
  12. PRAVASTATIN [Concomitant]
     Active Substance: PRAVASTATIN
  13. SINEMET [Concomitant]
     Active Substance: CARBIDOPA\LEVODOPA
  14. SYNTHROID [Concomitant]
     Active Substance: LEVOTHYROXINE SODIUM
  15. TYLENOL [Concomitant]
     Active Substance: ACETAMINOPHEN
  16. VESICARE [Concomitant]
     Active Substance: SOLIFENACIN SUCCINATE
  17. BIOTIN\CALCIUM PANTOTHENATE\CHOLINE BITARTRATE\CYANOCOBALAMIN\FOLIC AC [Concomitant]
     Active Substance: BIOTIN\CALCIUM PANTOTHENATE\CHOLINE BITARTRATE\CYANOCOBALAMIN\FOLIC ACID\INOSITOL\NIACINAMIDE\PYRIDO
  18. CHOLECALCIFEROL [Concomitant]
     Active Substance: CHOLECALCIFEROL
  19. WELLBUTRIN [Concomitant]
     Active Substance: BUPROPION HYDROCHLORIDE

REACTIONS (5)
  - Condition aggravated [Not Recovered/Not Resolved]
  - Upper limb fracture [Not Recovered/Not Resolved]
  - Foot fracture [Unknown]
  - Hand fracture [Not Recovered/Not Resolved]
  - Fall [Unknown]

NARRATIVE: CASE EVENT DATE: 20191101
